FAERS Safety Report 5119013-X (Version None)
Quarter: 2006Q3

REPORT INFORMATION
  Report Type: 
  Country: None (occurrence: None)
  Receive Date: 20060926
  Receipt Date: 20060922
  Transmission Date: 20061208
  Serious: Yes (Hospitalization, Other)
  Sender: FDA-Public Use
  Company Number: HQWYE647317JUN03

PATIENT
  Age: 55 Year
  Sex: Male
  Weight: 127.12 kg

DRUGS (13)
  1. MYLOTARG [Suspect]
     Indication: ACUTE PROMYELOCYTIC LEUKAEMIA
     Dosage: SEE IMAGE
     Route: 042
     Dates: start: 20030422, end: 20030422
  2. MYLOTARG [Suspect]
     Indication: ACUTE PROMYELOCYTIC LEUKAEMIA
     Dosage: SEE IMAGE
     Route: 042
     Dates: start: 20030508, end: 20030508
  3. ACYCLOVIR [Concomitant]
  4. GENTAMICIN SULFATE [Concomitant]
  5. ALLOPURINOL [Concomitant]
  6. COLACE (DOCUSATE SODIUM) [Concomitant]
  7. DIFLUCAN [Concomitant]
  8. PROTONIX [Concomitant]
  9. VITAMIN B COMPLEX TAB [Concomitant]
  10. ACETAMINOPHEN [Concomitant]
  11. HEPARIN [Concomitant]
  12. MORPHINE SULFATE [Concomitant]
  13. CIPRO [Concomitant]

REACTIONS (8)
  - ALANINE AMINOTRANSFERASE INCREASED [None]
  - ASPARTATE AMINOTRANSFERASE INCREASED [None]
  - BIOPSY BONE MARROW ABNORMAL [None]
  - CHILLS [None]
  - ENTEROCOCCAL BACTERAEMIA [None]
  - FEBRILE NEUTROPENIA [None]
  - HEPARIN-INDUCED THROMBOCYTOPENIA [None]
  - WEIGHT INCREASED [None]
